FAERS Safety Report 6136435-9 (Version None)
Quarter: 2009Q1

REPORT INFORMATION
  Report Type: 
  Country: None (occurrence: None)
  Receive Date: 20090330
  Receipt Date: 20080910
  Transmission Date: 20090719
  Serious: No
  Sender: FDA-Public Use
  Company Number: US-BAUSCH-2008BL003916

PATIENT
  Age: 77 Year
  Sex: Female

DRUGS (5)
  1. IPRATROPIUM BROMIDE [Suspect]
     Indication: POSTNASAL DRIP
     Route: 045
     Dates: start: 20080730, end: 20080908
  2. XYZAL [Concomitant]
     Indication: SEASONAL ALLERGY
     Route: 048
  3. NORVASC [Concomitant]
     Indication: HYPERTENSION
  4. ATIVAN [Concomitant]
     Route: 048
  5. RESTASIS [Concomitant]
     Indication: KERATOCONJUNCTIVITIS SICCA

REACTIONS (2)
  - DIARRHOEA [None]
  - DYSURIA [None]
